FAERS Safety Report 8390645-9 (Version None)
Quarter: 2012Q2

REPORT INFORMATION
  Report Type: 
  Country: None (occurrence: None)
  Receive Date: 20120515
  Receipt Date: 20120430
  Transmission Date: 20120825
  Serious: Yes (Hospitalization)
  Sender: FDA-Public Use
  Company Number: DSA_56350_2012

PATIENT
  Sex: Male

DRUGS (6)
  1. CELEXA [Concomitant]
  2. ASPIRIN [Concomitant]
  3. ARICEPT [Concomitant]
  4. NAMENDA [Concomitant]
  5. LEVOTHYROXINE SODIUM [Concomitant]
  6. ATIVAN [Suspect]
     Indication: ANXIETY
     Dosage: (1 MG, ORAL)
     Route: 048
     Dates: end: 20090118

REACTIONS (2)
  - BALANCE DISORDER [None]
  - ANXIETY [None]
